FAERS Safety Report 6310423-1 (Version None)
Quarter: 2009Q3

REPORT INFORMATION
  Report Type: 
  Country: None (occurrence: None)
  Receive Date: 20090814
  Receipt Date: 20090810
  Transmission Date: 20100115
  Serious: Yes (Disabling)
  Sender: FDA-Public Use
  Company Number: CA-PFIZER INC-2009237491

PATIENT
  Age: 39 Year

DRUGS (1)
  1. CELEBREX [Suspect]
     Indication: DYSMENORRHOEA
     Dosage: 200 MG, AS NEEDED
     Route: 048
     Dates: start: 20070621

REACTIONS (3)
  - EYE SWELLING [None]
  - OEDEMA PERIPHERAL [None]
  - SWELLING FACE [None]
